FAERS Safety Report 15699931 (Version 2)
Quarter: 2018Q4

REPORT INFORMATION
  Report Type: Report from Study
  Country: US (occurrence: US)
  Receive Date: 20181207
  Receipt Date: 20181210
  Transmission Date: 20190205
  Serious: Yes (Hospitalization, Other)
  Sender: FDA-Public Use
  Company Number: US-JNJFOC-20181200968

PATIENT
  Sex: Male

DRUGS (1)
  1. STELARA [Suspect]
     Active Substance: USTEKINUMAB
     Indication: CROHN^S DISEASE
     Route: 058
     Dates: start: 20180611

REACTIONS (6)
  - Pain [Unknown]
  - Pancreatic disorder [Unknown]
  - Hernia [Unknown]
  - Crohn^s disease [Unknown]
  - Cholecystitis [Unknown]
  - Product dose omission [Unknown]

NARRATIVE: CASE EVENT DATE: 20180611
